FAERS Safety Report 12059072 (Version 1)
Quarter: 2016Q1

REPORT INFORMATION
  Report Type: Spontaneous
  Country: DE (occurrence: DE)
  Receive Date: 20160210
  Receipt Date: 20160210
  Transmission Date: 20160526
  Serious: Yes (Hospitalization)
  Sender: FDA-Public Use
  Company Number: DE-ROCHE-1708169

PATIENT
  Sex: Male

DRUGS (15)
  1. PAMIDRONATE DISODIUM. [Suspect]
     Active Substance: PAMIDRONATE DISODIUM
     Indication: B-CELL LYMPHOMA
     Dosage: BEFORE AND AFTER THERAPY
     Route: 042
     Dates: start: 20151008
  2. TAMSULOSIN [Concomitant]
     Active Substance: TAMSULOSIN
  3. CLEXANE [Concomitant]
     Active Substance: ENOXAPARIN SODIUM
     Indication: ARRHYTHMIA
  4. ALLOPURINOL. [Concomitant]
     Active Substance: ALLOPURINOL
     Route: 065
  5. INSULIN [Concomitant]
     Active Substance: INSULIN NOS
  6. CYCLOPHOSPHAMIDE. [Suspect]
     Active Substance: CYCLOPHOSPHAMIDE
     Indication: B-CELL LYMPHOMA
     Dosage: LAST GIVEN PRIOR TO SAE : 14/NOV/2015
     Route: 042
     Dates: start: 20151016
  7. PREDNISONE. [Suspect]
     Active Substance: PREDNISONE
     Indication: B-CELL LYMPHOMA
     Dosage: 8 DAYS PER CYCLE,LAST GIVEN PRIOR TO SAE : 14/NOV/2015
     Route: 048
     Dates: start: 20151016
  8. BISOPROLOL HEMIFUMARATE [Concomitant]
     Active Substance: BISOPROLOL FUMARATE
  9. CLEXANE [Concomitant]
     Active Substance: ENOXAPARIN SODIUM
     Indication: DEEP VEIN THROMBOSIS
     Route: 065
  10. RITUXIMAB [Suspect]
     Active Substance: RITUXIMAB
     Indication: B-CELL LYMPHOMA
     Dosage: DATE LAST RETUXIMAB GIVEN PRIOR TO SAE: 13/NOV/2015
     Route: 042
     Dates: start: 20151015
  11. PEGFILGRASTIM [Suspect]
     Active Substance: PEGFILGRASTIM
     Indication: B-CELL LYMPHOMA
     Route: 058
     Dates: start: 20151019, end: 20151102
  12. DOXORUBICINE [Suspect]
     Active Substance: DOXORUBICIN
     Indication: B-CELL LYMPHOMA
     Dosage: LAST GIVEN PRIOR TO SAE : 14/NOV/2015
     Route: 042
     Dates: start: 20151016
  13. VINCRISTINE [Suspect]
     Active Substance: VINCRISTINE
     Indication: B-CELL LYMPHOMA
     Route: 042
     Dates: start: 20151016
  14. TORASEMIDE [Concomitant]
     Active Substance: TORSEMIDE
  15. METHOTREXATE (METHOTREXATE SODIUM) [Suspect]
     Active Substance: METHOTREXATE SODIUM
     Indication: B-CELL LYMPHOMA
     Dosage: BEFORE AND AFTER THERAPY
     Route: 042
     Dates: start: 20151008

REACTIONS (1)
  - Pulmonary thrombosis [Unknown]

NARRATIVE: CASE EVENT DATE: 20151127
